FAERS Safety Report 8270962-3 (Version None)
Quarter: 2012Q2

REPORT INFORMATION
  Report Type: 
  Country: None (occurrence: None)
  Receive Date: 20120410
  Receipt Date: 20120330
  Transmission Date: 20120825
  Serious: Yes (Other)
  Sender: FDA-Public Use
  Company Number: US-ROCHE-1055676

PATIENT
  Sex: Female

DRUGS (4)
  1. PERCOCET [Concomitant]
     Dosage: 5/325
  2. KLONOPIN [Suspect]
     Indication: PRODUCT USED FOR UNKNOWN INDICATION
  3. BUTRANS [Concomitant]
  4. ZANAFLEX [Concomitant]

REACTIONS (1)
  - RESPIRATORY DISTRESS [None]
